FAERS Safety Report 4398235-X (Version None)
Quarter: 2004Q3

REPORT INFORMATION
  Report Type: 
  Country: None (occurrence: None)
  Receive Date: 20040714
  Receipt Date: 20040714
  Transmission Date: 20050211
  Serious: No
  Sender: FDA-Public Use
  Company Number: None

PATIENT

DRUGS (1)
  1. STRATTERA [Suspect]

REACTIONS (4)
  - AGGRESSION [None]
  - AGITATION [None]
  - HYPOMANIA [None]
  - MANIA [None]
